FAERS Safety Report 9198064 (Version 1)
Quarter: 2013Q1

REPORT INFORMATION
  Report Type: Spontaneous
  Country: US (occurrence: US)
  Receive Date: 20130328
  Receipt Date: 20130328
  Transmission Date: 20140127
  Serious: Yes (Death, Hospitalization, Other)
  Sender: FDA-Public Use
  Company Number: US-AMGEN-USASP2012077481

PATIENT
  Age: 46 Year
  Sex: Male

DRUGS (1)
  1. ENBREL [Suspect]
     Indication: PSORIASIS
     Dosage: 50 MG, 2 TIMES/WK
     Dates: start: 2008, end: 201212

REACTIONS (7)
  - Disseminated intravascular coagulation [Fatal]
  - Streptococcal sepsis [Recovered/Resolved]
  - Kyphoscoliosis [Unknown]
  - Psoriasis [Not Recovered/Not Resolved]
  - Back disorder [Recovered/Resolved]
  - Feeling abnormal [Not Recovered/Not Resolved]
  - Incoherent [Not Recovered/Not Resolved]
